FAERS Safety Report 5418390-X (Version None)
Quarter: 2007Q3

REPORT INFORMATION
  Report Type: 
  Country: None (occurrence: None)
  Receive Date: 20070718
  Receipt Date: 20060523
  Transmission Date: 20080115
  Serious: Yes (Hospitalization, Other)
  Sender: FDA-Public Use
  Company Number: 2005161555

PATIENT
  Age: 67 Year
  Sex: Female
  Weight: 72.5755 kg

DRUGS (8)
  1. CELEBREX [Suspect]
     Indication: ARTHRITIS
     Dosage: 200 MG (200 MG, 1 IN 1 D);
     Dates: start: 20000101, end: 20011201
  2. CELEBREX [Suspect]
     Indication: PAIN
     Dosage: 200 MG (200 MG, 1 IN 1 D);
     Dates: start: 20000101, end: 20011201
  3. BEXTRA [Suspect]
     Indication: PAIN
  4. VIOXX [Suspect]
     Indication: ARTHRALGIA
     Dosage: 25 MG (25 MG, 1 IN 1 D);
  5. VIOXX [Suspect]
     Indication: MUSCLE SPASMS
     Dosage: 25 MG (25 MG, 1 IN 1 D);
  6. VIOXX [Suspect]
     Indication: NECK PAIN
     Dosage: 25 MG (25 MG, 1 IN 1 D);
  7. WELLBUTRIN [Concomitant]
  8. ATIVAN [Concomitant]

REACTIONS (2)
  - CEREBRAL THROMBOSIS [None]
  - EMBOLISM [None]
